FAERS Safety Report 8426677-1 (Version None)
Quarter: 2012Q2

REPORT INFORMATION
  Report Type: 
  Country: None (occurrence: None)
  Receive Date: 20120611
  Receipt Date: 20120607
  Transmission Date: 20120825
  Serious: Yes (Life-Threatening, Hospitalization, Other)
  Sender: FDA-Public Use
  Company Number: GB-PFIZER INC-2011265348

PATIENT
  Age: 64 Year
  Sex: Female

DRUGS (2)
  1. FENTANYL [Interacting]
     Indication: PAIN IN EXTREMITY
     Dosage: 12.5 UG, UNK
     Route: 062
  2. GABAPENTIN [Suspect]
     Indication: PAIN
     Dosage: UNK
     Route: 048

REACTIONS (3)
  - RESPIRATORY ARREST [None]
  - DRUG INTERACTION [None]
  - RENAL IMPAIRMENT [None]
